FAERS Safety Report 7309895-5 (Version None)
Quarter: 2011Q1

REPORT INFORMATION
  Report Type: 
  Country: None (occurrence: None)
  Receive Date: 20110119
  Receipt Date: 20100729
  Transmission Date: 20110831
  Serious: Yes (Hospitalization)
  Sender: FDA-Public Use
  Company Number: A-NJ2010-38776

PATIENT
  Age: 42 Year
  Sex: Female

DRUGS (1)
  1. TRACLEER [Suspect]
     Indication: PULMONARY ARTERIAL HYPERTENSION
     Dosage: ORAL
     Route: 048
     Dates: start: 20080918

REACTIONS (6)
  - WEIGHT INCREASED [None]
  - OEDEMA PERIPHERAL [None]
  - FLUID RETENTION [None]
  - SWELLING [None]
  - DYSPNOEA [None]
  - ASCITES [None]
